FAERS Safety Report 5713039-0 (Version None)
Quarter: 2008Q2

REPORT INFORMATION
  Report Type: 
  Country: None (occurrence: None)
  Receive Date: 20080422
  Receipt Date: 20080416
  Transmission Date: 20081010
  Serious: Yes (Hospitalization)
  Sender: FDA-Public Use
  Company Number: BR-ASTRAZENECA-2008UW08040

PATIENT
  Age: 77 Year
  Sex: Female
  Weight: 47 kg

DRUGS (4)
  1. ARIMIDEX [Suspect]
     Indication: BREAST CANCER
     Route: 048
     Dates: start: 20071001
  2. ATENOLOL [Suspect]
     Indication: HYPERTENSION
     Route: 048
     Dates: start: 20070101
  3. CLORONA [Concomitant]
     Indication: HYPERTENSION
     Route: 048
     Dates: start: 20070101
  4. CRESTOR [Concomitant]
     Indication: HYPERCHOLESTEROLAEMIA
     Route: 048
     Dates: start: 20040101

REACTIONS (5)
  - HERPES VIRUS INFECTION [None]
  - NAUSEA [None]
  - PAIN IN EXTREMITY [None]
  - THROMBOSIS [None]
  - WEIGHT DECREASED [None]
